FAERS Safety Report 13273501 (Version 1)
Quarter: 2017Q1

REPORT INFORMATION
  Report Type: Spontaneous
  Country: FR (occurrence: FR)
  Receive Date: 20170227
  Receipt Date: 20170227
  Transmission Date: 20170428
  Serious: Yes (Hospitalization)
  Sender: FDA-Public Use
  Company Number: FR-SA-2017SA032102

PATIENT
  Age: 86 Year
  Sex: Female

DRUGS (9)
  1. LASILIX [Suspect]
     Active Substance: FUROSEMIDE
     Dosage: FORM- COMPRIME SECABLE
     Route: 048
  2. ANASTROZOLE. [Concomitant]
     Active Substance: ANASTROZOLE
  3. COUMADINE [Suspect]
     Active Substance: WARFARIN SODIUM
     Dosage: FORM -  COMPRIME SECABLE
     Route: 048
     Dates: end: 20170119
  4. DIFFU K [Concomitant]
     Active Substance: POTASSIUM CHLORIDE
  5. LASILIX [Suspect]
     Active Substance: FUROSEMIDE
     Dosage: FORM - COMPRIME SECABLE
     Route: 048
  6. CORDARONE [Suspect]
     Active Substance: AMIODARONE HYDROCHLORIDE
     Dosage: FORM - COMPRIME SECABLE
     Route: 048
     Dates: end: 20170125
  7. APROVEL [Suspect]
     Active Substance: IRBESARTAN
     Indication: CARDIAC FAILURE
     Route: 048
     Dates: end: 20170123
  8. BISOPROLOL [Concomitant]
     Active Substance: BISOPROLOL
  9. PANTOPRAZOLE [Concomitant]
     Active Substance: PANTOPRAZOLE SODIUM

REACTIONS (1)
  - Acute kidney injury [Recovering/Resolving]

NARRATIVE: CASE EVENT DATE: 20170119
